FAERS Safety Report 5332369-8 (Version None)
Quarter: 2007Q2

REPORT INFORMATION
  Report Type: 
  Country: None (occurrence: None)
  Receive Date: 20070523
  Receipt Date: 20070516
  Transmission Date: 20071010
  Serious: Yes (Congenital Anomaly, Other)
  Sender: FDA-Public Use
  Company Number: B0440589A

PATIENT

DRUGS (3)
  1. COMBIVIR [Suspect]
     Dates: start: 20060425
  2. INVIRASE [Suspect]
     Dosage: 2000MG PER DAY
     Dates: start: 20060425
  3. NORVIR [Suspect]
     Dosage: 200MG PER DAY
     Dates: start: 20060425

REACTIONS (1)
  - HYDRONEPHROSIS [None]
